FAERS Safety Report 12693856 (Version 2)
Quarter: 2016Q3

REPORT INFORMATION
  Report Type: Spontaneous
  Country: US (occurrence: US)
  Receive Date: 20160829
  Receipt Date: 20160916
  Transmission Date: 20161109
  Serious: No
  Sender: FDA-Public Use
  Company Number: US-PFIZER INC-2016398432

PATIENT
  Sex: Female

DRUGS (3)
  1. NEURONTIN [Suspect]
     Active Substance: GABAPENTIN
     Dosage: UNK
  2. ULTRAM [Suspect]
     Active Substance: TRAMADOL HYDROCHLORIDE
     Dosage: UNK
  3. IODINE. [Suspect]
     Active Substance: IODINE
     Dosage: UNK

REACTIONS (1)
  - Drug hypersensitivity [Unknown]
